FAERS Safety Report 8774178 (Version 2)
Quarter: 2013Q4

REPORT INFORMATION
  Report Type: Spontaneous
  Country: US (occurrence: US)
  Receive Date: 20120907
  Receipt Date: 20131101
  Transmission Date: 20140711
  Serious: No
  Sender: FDA-Public Use
  Company Number: US-009507513-1209USA001522

PATIENT
  Sex: Female

DRUGS (3)
  1. JANUVIA [Suspect]
     Dosage: 2 DF, QD
     Route: 048
  2. GLIMEPIRIDE [Suspect]
  3. METFORMIN [Suspect]

REACTIONS (2)
  - Blood glucose increased [Recovered/Resolved]
  - Drug ineffective [Unknown]
